FAERS Safety Report 24348425 (Version 1)
Quarter: 2024Q3

REPORT INFORMATION
  Report Type: Spontaneous
  Country: US (occurrence: US)
  Receive Date: 20240923
  Receipt Date: 20240923
  Transmission Date: 20241017
  Serious: No
  Sender: STRIDES
  Company Number: US-STRIDES ARCOLAB LIMITED-2024SP007221

PATIENT
  Age: 48 Year
  Sex: Female

DRUGS (8)
  1. GABAPENTIN [Suspect]
     Active Substance: GABAPENTIN
     Indication: Neuralgia
     Dosage: UNK
     Route: 065
  2. GABAPENTIN [Suspect]
     Active Substance: GABAPENTIN
     Indication: Myofascial pain syndrome
  3. BUPIVACAINE [Suspect]
     Active Substance: BUPIVACAINE
     Indication: Neuralgia
     Dosage: UNK
     Route: 065
  4. BUPIVACAINE [Suspect]
     Active Substance: BUPIVACAINE
     Indication: Myofascial pain syndrome
  5. TIZANIDINE [Suspect]
     Active Substance: TIZANIDINE
     Indication: Neuralgia
     Dosage: UNK
     Route: 065
  6. TIZANIDINE [Suspect]
     Active Substance: TIZANIDINE
     Indication: Myofascial pain syndrome
  7. DICLOFENAC [Suspect]
     Active Substance: DICLOFENAC
     Indication: Neuralgia
     Dosage: UNK
     Route: 065
  8. DICLOFENAC [Suspect]
     Active Substance: DICLOFENAC
     Indication: Myofascial pain syndrome

REACTIONS (2)
  - Therapy non-responder [Unknown]
  - Off label use [Unknown]
